FAERS Safety Report 7800803-7 (Version None)
Quarter: 2011Q4

REPORT INFORMATION
  Report Type: 
  Country: None (occurrence: None)
  Receive Date: 20111006
  Receipt Date: 20110921
  Transmission Date: 20120403
  Serious: Yes (Other)
  Sender: FDA-Public Use
  Company Number: US-BAYER-2011-083906

PATIENT
  Sex: Female
  Weight: 54 kg

DRUGS (3)
  1. ASPIRIN [Suspect]
     Indication: ANALGESIC THERAPY
     Route: 048
  2. CRESTOR [Concomitant]
     Dosage: 0.5 DF, QD
     Route: 048
  3. THYROID PREPARATIONS [Concomitant]
     Dosage: 1 DF, QD
     Route: 048

REACTIONS (3)
  - NASAL OEDEMA [None]
  - EYE SWELLING [None]
  - ANGIOEDEMA [None]
